FAERS Safety Report 5071699-4 (Version None)
Quarter: 2006Q3

REPORT INFORMATION
  Report Type: 
  Country: None (occurrence: None)
  Receive Date: 20060801
  Receipt Date: 20050523
  Transmission Date: 20061208
  Serious: Yes (Other)
  Sender: FDA-Public Use
  Company Number: 2005BH000049

PATIENT
  Age: 43 Year
  Sex: Female

DRUGS (3)
  1. HEPARIN SODIUM [Suspect]
     Dosage: SEE IMAGE
     Route: 042
  2. CLOPIDOGREL [Suspect]
  3. ASPIRIN [Suspect]

REACTIONS (2)
  - HEPARIN-INDUCED THROMBOCYTOPENIA [None]
  - THROMBOTIC STROKE [None]
